FAERS Safety Report 5523819-2 (Version None)
Quarter: 2007Q4

REPORT INFORMATION
  Report Type: 
  Country: None (occurrence: None)
  Receive Date: 20071119
  Receipt Date: 20071105
  Transmission Date: 20080405
  Serious: Yes (Life-Threatening)
  Sender: FDA-Public Use
  Company Number: 2007P1000694

PATIENT
  Age: 25 Year
  Sex: Male

DRUGS (6)
  1. BUSULFAN (BUSULFAN) [Suspect]
     Indication: STEM CELL TRANSPLANT
     Dosage: 29.2 ML; QD; IV
     Route: 042
     Dates: start: 20070315, end: 20070318
  2. CYCLOPHOSPHAMIDE [Concomitant]
  3. VALPROATE SODIUM [Concomitant]
  4. NEUPOGEN [Concomitant]
  5. METHOTREXATE [Concomitant]
  6. CYCLOSPORINE [Concomitant]

REACTIONS (4)
  - PERIANAL ABSCESS [None]
  - PHARYNGITIS [None]
  - PNEUMONIA STAPHYLOCOCCAL [None]
  - STOMATITIS [None]
